FAERS Safety Report 13918572 (Version 1)
Quarter: 2017Q3

REPORT INFORMATION
  Report Type: Spontaneous
  Country: ZA (occurrence: ZA)
  Receive Date: 20170829
  Receipt Date: 20170829
  Transmission Date: 20171127
  Serious: Yes (Hospitalization, Other)
  Sender: FDA-Public Use
  Company Number: ZA-MYLANLABS-2017M1052948

PATIENT
  Age: 69 Year
  Sex: Male

DRUGS (6)
  1. RAMIWIN [Concomitant]
     Active Substance: RAMIPRIL
     Indication: HYPERTENSION
     Dosage: 5 MG, UNK
     Dates: start: 20140822
  2. SIMVACOR [Concomitant]
     Active Substance: SIMVASTATIN
     Indication: BLOOD CHOLESTEROL ABNORMAL
     Dosage: 20 MG, UNK
     Dates: start: 20170322
  3. FUROSEMIDE MYLAN [Suspect]
     Active Substance: FUROSEMIDE
     Indication: DIURETIC THERAPY
     Dosage: 40 MG, UNK
     Dates: start: 20150730
  4. ELANTAN [Concomitant]
     Active Substance: ISOSORBIDE MONONITRATE
     Indication: HYPERTENSION
     Dosage: 20 MG, UNK
     Dates: start: 20170724
  5. SPIRACTIN [Concomitant]
     Active Substance: SPIRONOLACTONE
     Indication: DIURETIC THERAPY
     Dosage: 25 MG, UNK
     Dates: start: 20140822
  6. ECOTRIN [Concomitant]
     Active Substance: ASPIRIN
     Dosage: 81 MG, UNK
     Dates: start: 20141017

REACTIONS (5)
  - Cough [Not Recovered/Not Resolved]
  - Cardiac disorder [Not Recovered/Not Resolved]
  - Pulmonary oedema [Not Recovered/Not Resolved]
  - Anxiety [Not Recovered/Not Resolved]
  - Dyspnoea [Not Recovered/Not Resolved]
